FAERS Safety Report 20539453 (Version 1)
Quarter: 2022Q1

REPORT INFORMATION
  Report Type: Report from Study
  Country: IE (occurrence: IE)
  Receive Date: 20220302
  Receipt Date: 20220302
  Transmission Date: 20220424
  Serious: Yes (Hospitalization, Disabling, Congenital Anomaly, Other)
  Sender: FDA-Public Use
  Company Number: IE-SA-2018SA232785

PATIENT
  Age: 41 Year
  Sex: Female

DRUGS (25)
  1. FENTANYL [Suspect]
     Active Substance: FENTANYL
     Indication: Product used for unknown indication
     Dosage: 100 UG, Q3D
     Route: 065
  2. FENTANYL [Suspect]
     Active Substance: FENTANYL
     Dosage: 100 UG, BIW
     Route: 065
  3. ALEMTUZUMAB [Suspect]
     Active Substance: ALEMTUZUMAB
     Indication: Multiple sclerosis
     Dosage: UNK, UNK
     Route: 041
  4. CALCIUM CARBONATE\CHOLECALCIFEROL [Concomitant]
     Active Substance: CALCIUM CARBONATE\CHOLECALCIFEROL
     Indication: Product used for unknown indication
     Dosage: 1 MG, BID
     Route: 065
  5. SPASMONAL                          /00097002/ [Concomitant]
     Indication: Muscle spasms
     Dosage: 240 MG, QD
     Route: 065
  6. MIRTAZAPINE [Concomitant]
     Active Substance: MIRTAZAPINE
     Indication: Product used for unknown indication
     Dosage: 15 MG, HS (NIGHT)
     Route: 065
  7. PROZAC [Concomitant]
     Active Substance: FLUOXETINE HYDROCHLORIDE
     Indication: Product used for unknown indication
     Dosage: 60 MG, QD
     Route: 065
  8. IXPRIM [Concomitant]
     Active Substance: ACETAMINOPHEN\TRAMADOL HYDROCHLORIDE
     Indication: Product used for unknown indication
     Dosage: 2 MG, PRN; AS REQUIRED
     Route: 065
  9. ESOMEPRAZOLE [Concomitant]
     Active Substance: ESOMEPRAZOLE
     Indication: Product used for unknown indication
     Dosage: 40 MG, QD
     Route: 065
  10. LIORESAL [Concomitant]
     Active Substance: BACLOFEN
     Indication: Product used for unknown indication
     Dosage: 10 MG, BID
     Route: 065
  11. SOLPADOL                           /00116401/ [Concomitant]
     Indication: Product used for unknown indication
     Dosage: 2 MG, TID
     Route: 065
  12. SOLPADOL                           /00116401/ [Concomitant]
     Dosage: 2 MG, TID
     Route: 065
  13. QUETIAPINE [Concomitant]
     Active Substance: QUETIAPINE
     Indication: Product used for unknown indication
     Dosage: 50 MG, HS (NIGHT)
     Route: 065
  14. ROSUVASTATIN [Concomitant]
     Active Substance: ROSUVASTATIN
     Indication: Product used for unknown indication
     Dosage: 10 MG, QD
     Route: 065
  15. CHOLECALCIFEROL [Concomitant]
     Active Substance: CHOLECALCIFEROL
     Indication: Product used for unknown indication
     Dosage: 800 IU, QD
     Route: 065
  16. VENTOLINE                          /00139501/ [Concomitant]
     Indication: Product used for unknown indication
     Dosage: 200 UG; QDS
     Route: 065
  17. MOVICOL [Concomitant]
     Active Substance: POLYETHYLENE GLYCOL 3350\POTASSIUM CHLORIDE\SODIUM BICARBONATE\SODIUM CHLORIDE
     Indication: Product used for unknown indication
     Dosage: 1 MG, QD
     Route: 065
  18. VALIUM [Concomitant]
     Active Substance: DIAZEPAM
     Indication: Muscle spasms
     Dosage: 5 MG, PRN; AS REQUIRED
     Route: 065
  19. AMITRIPTYLINE [Concomitant]
     Active Substance: AMITRIPTYLINE
     Indication: Product used for unknown indication
     Dosage: 10 MG, QD
     Route: 065
  20. CALCIUM CARBONATE\CHOLECALCIFEROL [Concomitant]
     Active Substance: CALCIUM CARBONATE\CHOLECALCIFEROL
     Route: 065
  21. SCHERIPROCT                        /01814801/ [Concomitant]
     Indication: Product used for unknown indication
     Dosage: UNK UNK, QD
     Route: 065
  22. SCHERIPROCT                        /01814801/ [Concomitant]
     Dosage: 1 MG, PRN STRENGTH: 1.5 MG/G; AS REQUIRED
     Route: 065
  23. SYMMETREL [Concomitant]
     Active Substance: AMANTADINE HYDROCHLORIDE
     Indication: Product used for unknown indication
     Dosage: 100 MG, BID
     Route: 065
  24. PROTHIADEN [Concomitant]
     Active Substance: DOTHIEPIN HYDROCHLORIDE
     Indication: Product used for unknown indication
     Route: 065
  25. THIORIDAZINE [Concomitant]
     Active Substance: THIORIDAZINE
     Indication: Product used for unknown indication
     Dosage: 1 MG, TID
     Route: 065

REACTIONS (63)
  - Multiple sclerosis relapse [Not Recovered/Not Resolved]
  - Kidney infection [Recovered/Resolved]
  - Lower respiratory tract infection [Recovered/Resolved]
  - Haematochezia [Not Recovered/Not Resolved]
  - Spinal pain [Not Recovered/Not Resolved]
  - Balance disorder [Not Recovered/Not Resolved]
  - Urinary incontinence [Recovering/Resolving]
  - Condition aggravated [Not Recovered/Not Resolved]
  - Herpes zoster [Recovering/Resolving]
  - Diverticulum [Not Recovered/Not Resolved]
  - Back pain [Not Recovered/Not Resolved]
  - Chest discomfort [Recovering/Resolving]
  - Anal incontinence [Not Recovered/Not Resolved]
  - Intervertebral disc disorder [Not Recovered/Not Resolved]
  - Condition aggravated [Not Recovered/Not Resolved]
  - Muscular weakness [Not Recovered/Not Resolved]
  - Grip strength decreased [Not Recovered/Not Resolved]
  - Loss of personal independence in daily activities [Not Recovered/Not Resolved]
  - Mobility decreased [Recovering/Resolving]
  - Neuralgia [Recovering/Resolving]
  - Back pain [Not Recovered/Not Resolved]
  - Diplopia [Unknown]
  - Arthritis [Recovering/Resolving]
  - Ocular hyperaemia [Unknown]
  - Condition aggravated [Unknown]
  - Anorectal disorder [Unknown]
  - Dysarthria [Unknown]
  - Hemiparesis [Unknown]
  - Fatigue [Recovering/Resolving]
  - Paraesthesia [Not Recovered/Not Resolved]
  - Burning sensation [Not Recovered/Not Resolved]
  - Dizziness [Not Recovered/Not Resolved]
  - Headache [Unknown]
  - Headache [Recovering/Resolving]
  - Speech disorder [Not Recovered/Not Resolved]
  - Muscle spasms [Recovering/Resolving]
  - Band sensation [Not Recovered/Not Resolved]
  - Nausea [Unknown]
  - Arthralgia [Not Recovered/Not Resolved]
  - Fatigue [Not Recovered/Not Resolved]
  - Sensation of foreign body [Recovering/Resolving]
  - Frustration tolerance decreased [Not Recovered/Not Resolved]
  - Dysphagia [Recovering/Resolving]
  - Tinnitus [Unknown]
  - Drug ineffective [Unknown]
  - Vertigo [Recovering/Resolving]
  - Rash [Recovered/Resolved]
  - Thyroid function test abnormal [Unknown]
  - Pharyngitis streptococcal [Recovering/Resolving]
  - Renal function test abnormal [Unknown]
  - Arthralgia [Not Recovered/Not Resolved]
  - Osteoarthritis [Not Recovered/Not Resolved]
  - Abdominal pain [Not Recovered/Not Resolved]
  - Frequent bowel movements [Not Recovered/Not Resolved]
  - Weight decreased [Not Recovered/Not Resolved]
  - Diarrhoea [Not Recovered/Not Resolved]
  - Pain in extremity [Not Recovered/Not Resolved]
  - Fibromyalgia [Not Recovered/Not Resolved]
  - Arthralgia [Not Recovered/Not Resolved]
  - Inflammation [Not Recovered/Not Resolved]
  - Arthritis [Not Recovered/Not Resolved]
  - Swelling [Not Recovered/Not Resolved]
  - Visual impairment [Not Recovered/Not Resolved]

NARRATIVE: CASE EVENT DATE: 20170601
